FAERS Safety Report 9924988 (Version 2)
Quarter: 2014Q1

REPORT INFORMATION
  Report Type: Report from Study
  Country: US (occurrence: KR)
  Receive Date: 20140226
  Receipt Date: 20140313
  Transmission Date: 20141002
  Serious: Yes (Hospitalization)
  Sender: FDA-Public Use
  Company Number: KR-FRI-1000054580

PATIENT
  Age: 77 Year
  Sex: Male
  Weight: 75 kg

DRUGS (12)
  1. ROFLUMILAST [Suspect]
     Indication: CHRONIC OBSTRUCTIVE PULMONARY DISEASE
     Dosage: 500 MCG
     Route: 048
     Dates: start: 20131211
  2. SPIRIVA [Concomitant]
     Route: 055
     Dates: start: 20071025
  3. SERETIDE 500 DISCUS [Concomitant]
     Dates: start: 20130213
  4. ERDOS [Concomitant]
     Dates: start: 20130605
  5. HEBRON-F [Concomitant]
     Dates: start: 20130821
  6. FLOMOX [Concomitant]
     Dates: start: 20130619
  7. SOLONDO [Concomitant]
     Dates: start: 20130619
  8. ASPIRIN [Concomitant]
     Dates: start: 20100310
  9. DEPAS [Concomitant]
     Dates: start: 20100115
  10. DICAMAX [Concomitant]
     Dates: start: 20130605
  11. CONCOR [Concomitant]
     Dates: start: 20130429
  12. ALBIS [Concomitant]
     Dates: start: 20130213

REACTIONS (2)
  - Peptic ulcer [Recovering/Resolving]
  - Chronic obstructive pulmonary disease [Recovering/Resolving]
